FAERS Safety Report 20726975 (Version 1)
Quarter: 2022Q2

REPORT INFORMATION
  Report Type: Spontaneous
  Country: US (occurrence: US)
  Receive Date: 20220419
  Receipt Date: 20220419
  Transmission Date: 20220721
  Serious: Yes (Hospitalization)
  Sender: FDA-Public Use
  Company Number: US-SA-SAC20220413001673

PATIENT
  Age: 74 Year
  Sex: Female

DRUGS (2)
  1. DUPIXENT [Suspect]
     Active Substance: DUPILUMAB
     Indication: Asthma
     Dosage: UNK UNK, 1X; LOADING DOSE (1X)
     Route: 058
     Dates: start: 20220325, end: 20220325
  2. DUPIXENT [Suspect]
     Active Substance: DUPILUMAB
     Dosage: 300 MG, QOW
     Route: 058
     Dates: start: 20220408

REACTIONS (7)
  - COVID-19 [Unknown]
  - Asthenia [Not Recovered/Not Resolved]
  - Productive cough [Unknown]
  - Gastritis [Unknown]
  - Sleep disorder [Unknown]
  - Nausea [Recovered/Resolved]
  - Product use issue [Unknown]

NARRATIVE: CASE EVENT DATE: 20220325
